FAERS Safety Report 15844073 (Version 1)
Quarter: 2019Q1

REPORT INFORMATION
  Report Type: Spontaneous
  Country: US (occurrence: US)
  Receive Date: 20190118
  Receipt Date: 20190118
  Transmission Date: 20190417
  Serious: No
  Sender: FDA-Public Use
  Company Number: US-HERITAGE PHARMACEUTICALS-2018HTG00156

PATIENT
  Sex: Female

DRUGS (1)
  1. DOXYCYCLINE. [Suspect]
     Active Substance: DOXYCYCLINE

REACTIONS (2)
  - Hypersensitivity [Unknown]
  - Rash [Unknown]
